FAERS Safety Report 6259561-2 (Version None)
Quarter: 2009Q3

REPORT INFORMATION
  Report Type: 
  Country: None (occurrence: None)
  Receive Date: 20090708
  Receipt Date: 20090702
  Transmission Date: 20100115
  Serious: Yes (Other)
  Sender: FDA-Public Use
  Company Number: ES-PFIZER INC-2009235376

PATIENT
  Age: 35 Year

DRUGS (1)
  1. BESITRAN [Suspect]
     Indication: OBSESSIVE-COMPULSIVE DISORDER
     Dosage: 100 MG, 2X/DAY
     Route: 048
     Dates: start: 20080515, end: 20090130

REACTIONS (2)
  - ANAEMIA [None]
  - POLYMENORRHAGIA [None]
